FAERS Safety Report 25725815 (Version 1)
Quarter: 2025Q3

REPORT INFORMATION
  Report Type: Spontaneous
  Country: US (occurrence: None)
  Receive Date: 20250823
  Receipt Date: 20250823
  Transmission Date: 20251020
  Serious: No
  Sender: FDA-CTU
  Company Number: None

PATIENT
  Age: 73 Year
  Sex: Male

DRUGS (1)
  1. QULIPTA [Suspect]
     Active Substance: ATOGEPANT
     Dates: start: 20250811, end: 20250823

REACTIONS (2)
  - Nausea [None]
  - Migraine [None]

NARRATIVE: CASE EVENT DATE: 20250818
